FAERS Safety Report 7902886-2 (Version None)
Quarter: 2011Q4

REPORT INFORMATION
  Report Type: 
  Country: None (occurrence: None)
  Receive Date: 20111107
  Receipt Date: 20111027
  Transmission Date: 20120403
  Serious: Yes (Hospitalization)
  Sender: FDA-Public Use
  Company Number: 2011SP050759

PATIENT
  Age: 78 Year
  Sex: Female

DRUGS (2)
  1. REMERON [Suspect]
     Indication: DEPRESSION
     Dosage: 30 MG;QD;PO
     Route: 048
     Dates: start: 20110601
  2. ESCITALOPRAM [Suspect]
     Indication: DEPRESSION
     Dosage: 20 MG;QD;PO 10 MG;QD;PO
     Route: 048
     Dates: start: 20111020, end: 20111023

REACTIONS (4)
  - TREMOR [None]
  - DYSKINESIA [None]
  - BUNDLE BRANCH BLOCK RIGHT [None]
  - DYSTONIA [None]
